FAERS Safety Report 18320068 (Version 3)
Quarter: 2020Q4

REPORT INFORMATION
  Report Type: Spontaneous
  Country: JP (occurrence: JP)
  Receive Date: 20200928
  Receipt Date: 20201027
  Transmission Date: 20210113
  Serious: Yes (Other)
  Sender: FDA-Public Use
  Company Number: NVSJ2020JP009373

PATIENT
  Age: 72 Year
  Sex: Female

DRUGS (1)
  1. NEORAL [Suspect]
     Active Substance: CYCLOSPORINE
     Indication: POROKERATOSIS
     Dosage: 100 MG
     Route: 065

REACTIONS (2)
  - Product use in unapproved indication [Unknown]
  - Renal impairment [Recovered/Resolved]
